FAERS Safety Report 24168771 (Version 2)
Quarter: 2025Q1

REPORT INFORMATION
  Report Type: Report from Study
  Country: JP (occurrence: JP)
  Receive Date: 20240802
  Receipt Date: 20250108
  Transmission Date: 20250409
  Serious: Yes (Hospitalization, Other)
  Sender: ALEXION PHARMACEUTICALS
  Company Number: 2024A159294

PATIENT
  Age: 36 Year
  Weight: 76 kg

DRUGS (38)
  1. TEZEPELUMAB [Suspect]
     Active Substance: TEZEPELUMAB
     Indication: Asthma
  2. TEZEPELUMAB [Suspect]
     Active Substance: TEZEPELUMAB
     Route: 058
  3. TEZEPELUMAB [Suspect]
     Active Substance: TEZEPELUMAB
  4. TEZEPELUMAB [Suspect]
     Active Substance: TEZEPELUMAB
     Route: 058
  5. TRELEGY ELLIPTA [Concomitant]
     Active Substance: FLUTICASONE FUROATE\UMECLIDINIUM BROMIDE\VILANTEROL TRIFENATATE
     Indication: Asthma
     Dosage: NUMBER OF SEPARATE DOSAGES UNKNOWN
  6. TRELEGY ELLIPTA [Concomitant]
     Active Substance: FLUTICASONE FUROATE\UMECLIDINIUM BROMIDE\VILANTEROL TRIFENATATE
     Dosage: NUMBER OF SEPARATE DOSAGES UNKNOWN
  7. TRELEGY ELLIPTA [Concomitant]
     Active Substance: FLUTICASONE FUROATE\UMECLIDINIUM BROMIDE\VILANTEROL TRIFENATATE
     Dosage: NUMBER OF SEPARATE DOSAGES UNKNOWN
  8. TRELEGY ELLIPTA [Concomitant]
     Active Substance: FLUTICASONE FUROATE\UMECLIDINIUM BROMIDE\VILANTEROL TRIFENATATE
     Dosage: NUMBER OF SEPARATE DOSAGES UNKNOWN
  9. PREDNISOLONE [Concomitant]
     Active Substance: PREDNISOLONE
     Indication: Asthma
     Dosage: NUMBER OF SEPARATE DOSAGES UNKNOWN
     Route: 048
  10. PREDNISOLONE [Concomitant]
     Active Substance: PREDNISOLONE
     Dosage: NUMBER OF SEPARATE DOSAGES UNKNOWN
  11. MONTELUKAST SODIUM [Concomitant]
     Active Substance: MONTELUKAST SODIUM
     Indication: Asthma
     Dosage: NUMBER OF SEPARATE DOSAGES UNKNOWN
     Route: 048
  12. MONTELUKAST SODIUM [Concomitant]
     Active Substance: MONTELUKAST SODIUM
     Dosage: NUMBER OF SEPARATE DOSAGES UNKNOWN
  13. THEOPHYLLINE [Concomitant]
     Active Substance: THEOPHYLLINE
     Indication: Asthma
     Dosage: NUMBER OF SEPARATE DOSAGES UNKNOWN
  14. THEOPHYLLINE [Concomitant]
     Active Substance: THEOPHYLLINE
     Dosage: NUMBER OF SEPARATE DOSAGES UNKNOWN
     Route: 048
  15. THEOPHYLLINE [Concomitant]
     Active Substance: THEOPHYLLINE
     Dosage: NUMBER OF SEPARATE DOSAGES UNKNOWN
  16. THEOPHYLLINE [Concomitant]
     Active Substance: THEOPHYLLINE
     Dosage: NUMBER OF SEPARATE DOSAGES UNKNOWN
     Route: 048
  17. ALESION [Concomitant]
     Active Substance: EPINASTINE HYDROCHLORIDE
     Indication: Dermatitis allergic
     Dosage: NUMBER OF SEPARATE DOSAGES UNKNOWN
     Route: 048
  18. ALESION [Concomitant]
     Active Substance: EPINASTINE HYDROCHLORIDE
     Dosage: NUMBER OF SEPARATE DOSAGES UNKNOWN
  19. DEPAKENE [Concomitant]
     Active Substance: VALPROIC ACID
     Indication: Social anxiety disorder
     Dosage: NUMBER OF SEPARATE DOSAGES UNKNOWN
     Route: 048
  20. DEPAKENE [Concomitant]
     Active Substance: VALPROIC ACID
     Dosage: NUMBER OF SEPARATE DOSAGES UNKNOWN
  21. SERTRALINE HYDROCHLORIDE [Concomitant]
     Active Substance: SERTRALINE HYDROCHLORIDE
     Indication: Social anxiety disorder
     Dosage: NUMBER OF SEPARATE DOSAGES UNKNOWN
     Route: 048
  22. SERTRALINE HYDROCHLORIDE [Concomitant]
     Active Substance: SERTRALINE HYDROCHLORIDE
     Dosage: NUMBER OF SEPARATE DOSAGES UNKNOWN
  23. ZYPREXA [Concomitant]
     Active Substance: OLANZAPINE
     Indication: Social anxiety disorder
     Dosage: NUMBER OF SEPARATE DOSAGES UNKNOWN
     Route: 048
  24. ZYPREXA [Concomitant]
     Active Substance: OLANZAPINE
     Dosage: NUMBER OF SEPARATE DOSAGES UNKNOWN
  25. OLANZAPINE [Concomitant]
     Active Substance: OLANZAPINE
     Indication: Social anxiety disorder
     Dosage: NUMBER OF SEPARATE DOSAGES UNKNOWN
     Route: 048
  26. OLANZAPINE [Concomitant]
     Active Substance: OLANZAPINE
     Dosage: NUMBER OF SEPARATE DOSAGES UNKNOWN
  27. LUNESTA [Concomitant]
     Active Substance: ESZOPICLONE
     Indication: Social anxiety disorder
     Dosage: NUMBER OF SEPARATE DOSAGES UNKNOWN
     Route: 048
  28. LUNESTA [Concomitant]
     Active Substance: ESZOPICLONE
     Dosage: NUMBER OF SEPARATE DOSAGES UNKNOWN
  29. RIVOTRIL [Concomitant]
     Active Substance: CLONAZEPAM
     Indication: Social anxiety disorder
     Dosage: NUMBER OF SEPARATE DOSAGES UNKNOWN
     Route: 048
  30. RIVOTRIL [Concomitant]
     Active Substance: CLONAZEPAM
     Dosage: NUMBER OF SEPARATE DOSAGES UNKNOWN
  31. DAYVIGO [Concomitant]
     Active Substance: LEMBOREXANT
     Indication: Social anxiety disorder
     Dosage: NUMBER OF SEPARATE DOSAGES UNKNOWN
     Route: 048
  32. DAYVIGO [Concomitant]
     Active Substance: LEMBOREXANT
     Dosage: NUMBER OF SEPARATE DOSAGES UNKNOWN
  33. CYMBALTA [Concomitant]
     Active Substance: DULOXETINE HYDROCHLORIDE
     Indication: Social anxiety disorder
     Dosage: NUMBER OF SEPARATE DOSAGES UNKNOWN
     Route: 048
  34. CYMBALTA [Concomitant]
     Active Substance: DULOXETINE HYDROCHLORIDE
     Dosage: NUMBER OF SEPARATE DOSAGES UNKNOWN
  35. ABILIFY [Concomitant]
     Active Substance: ARIPIPRAZOLE
     Indication: Social anxiety disorder
     Dosage: NUMBER OF SEPARATE DOSAGES UNKNOWN
     Route: 048
  36. ABILIFY [Concomitant]
     Active Substance: ARIPIPRAZOLE
     Dosage: NUMBER OF SEPARATE DOSAGES UNKNOWN
  37. MAGNESIUM OXIDE [Concomitant]
     Active Substance: MAGNESIUM OXIDE
     Indication: Social anxiety disorder
     Route: 048
  38. MAGNESIUM OXIDE [Concomitant]
     Active Substance: MAGNESIUM OXIDE

REACTIONS (2)
  - Erysipelas [Recovered/Resolved]
  - Asthma [Recovered/Resolved]
